FAERS Safety Report 16470800 (Version 1)
Quarter: 2019Q2

REPORT INFORMATION
  Report Type: Report from Study
  Country: NL (occurrence: NL)
  Receive Date: 20190624
  Receipt Date: 20190624
  Transmission Date: 20190711
  Serious: Yes (Death, Hospitalization)
  Sender: FDA-Public Use
  Company Number: PHHY2019NL085241

PATIENT
  Age: 68 Year
  Sex: Female

DRUGS (1)
  1. ZOMETA [Suspect]
     Active Substance: ZOLEDRONIC ACID
     Indication: BREAST CANCER METASTATIC
     Dosage: 1 DF (4 MG/100 ML), ONCE EVERY 12 WEEKS
     Route: 042
     Dates: start: 20190115

REACTIONS (4)
  - Death [Fatal]
  - Fall [Unknown]
  - Inappropriate schedule of product administration [Unknown]
  - Neck injury [Unknown]

NARRATIVE: CASE EVENT DATE: 20190409
